FAERS Safety Report 7119562-9 (Version None)
Quarter: 2010Q4

REPORT INFORMATION
  Report Type: 
  Country: None (occurrence: None)
  Receive Date: 20101112
  Receipt Date: 20101029
  Transmission Date: 20110411
  Serious: Yes (Other)
  Sender: FDA-Public Use
  Company Number: CTI_01264_2010

PATIENT
  Sex: Male

DRUGS (5)
  1. CUROSURF [Suspect]
     Indication: ALVEOLITIS
     Dosage: 1 DF INTRATRACHEAL
     Route: 039
     Dates: start: 20101016, end: 20101016
  2. CLAFORAN /00497602/ [Concomitant]
  3. GENTAMICINE [Concomitant]
  4. FENTANYL [Concomitant]
  5. CLAMOXYL /00249601/ [Concomitant]

REACTIONS (3)
  - C-REACTIVE PROTEIN INCREASED [None]
  - DRUG INEFFECTIVE [None]
  - WRONG TECHNIQUE IN DRUG USAGE PROCESS [None]
